FAERS Safety Report 8854749 (Version 2)
Quarter: 2012Q4

REPORT INFORMATION
  Report Type: 
  Country: US (occurrence: US)
  Receive Date: 20121023
  Receipt Date: 20121102
  Transmission Date: 20130627
  Serious: Yes (Other)
  Sender: FDA-Public Use
  Company Number: US-BRISTOL-MYERS SQUIBB COMPANY-17039058

PATIENT
  Age: 60 Year
  Sex: Female
  Weight: 70 kg

DRUGS (4)
  1. ORENCIA [Suspect]
     Indication: RHEUMATOID ARTHRITIS
     Dosage: Last Infusion: 11OCT2012
     Route: 042
  2. NEXIUM [Concomitant]
  3. LIPITOR [Concomitant]
  4. XANAX [Concomitant]

REACTIONS (2)
  - Bunion [Not Recovered/Not Resolved]
  - Tendon injury [Unknown]
